FAERS Safety Report 14151551 (Version 2)
Quarter: 2017Q4

REPORT INFORMATION
  Report Type: Spontaneous
  Country: US (occurrence: US)
  Receive Date: 20171102
  Receipt Date: 20171103
  Transmission Date: 20180321
  Serious: No
  Sender: FDA-Public Use
  Company Number: US-PFIZER INC-2017471849

PATIENT
  Age: 71 Year
  Sex: Female
  Weight: 108.9 kg

DRUGS (1)
  1. ZOLOFT [Suspect]
     Active Substance: SERTRALINE HYDROCHLORIDE
     Indication: DEPRESSION
     Dosage: 100 MG TABLET 1 AND 1/2 TABLET ONCE A DAY
     Route: 048

REACTIONS (4)
  - Drug effect incomplete [Unknown]
  - Fatigue [Unknown]
  - Heart rate increased [Unknown]
  - Sleep disorder [Unknown]
